FAERS Safety Report 8720193 (Version 2)
Quarter: 2013Q4

REPORT INFORMATION
  Report Type: Spontaneous
  Country: US (occurrence: US)
  Receive Date: 20120813
  Receipt Date: 20131031
  Transmission Date: 20140711
  Serious: No
  Sender: FDA-Public Use
  Company Number: US-009507513-2012SP008343

PATIENT
  Age: 62 Year
  Sex: Female
  Weight: 591.38 kg

DRUGS (1)
  1. DR. SCHOLL^S FREEZE AWAY COMMON + PLANTAR WART REMOVER [Suspect]
     Indication: PRODUCT USED FOR UNKNOWN INDICATION
     Dosage: UNK UNK, UNKNOWN
     Route: 061
     Dates: start: 20120115

REACTIONS (11)
  - Dyspnoea [Recovered/Resolved]
  - Lip swelling [Recovered/Resolved]
  - Swollen tongue [Recovered/Resolved]
  - Pharyngeal oedema [Recovered/Resolved]
  - Heart rate increased [Recovered/Resolved]
  - Blood pressure increased [Unknown]
  - Paraesthesia [Unknown]
  - Choking sensation [Recovered/Resolved]
  - Pallor [Unknown]
  - Fall [Recovered/Resolved]
  - Accidental exposure to product [Recovering/Resolving]
